FAERS Safety Report 6614451-8 (Version None)
Quarter: 2010Q1

REPORT INFORMATION
  Report Type: 
  Country: None (occurrence: None)
  Receive Date: 20100304
  Receipt Date: 20100223
  Transmission Date: 20100710
  Serious: Yes (Hospitalization, Other)
  Sender: FDA-Public Use
  Company Number: US-ABBOTT-06P-163-0345134-00

PATIENT
  Sex: Male
  Weight: 83.99 kg

DRUGS (8)
  1. SYNTHROID [Suspect]
     Indication: THYROIDECTOMY
     Route: 048
     Dates: start: 19770101, end: 20090901
  2. SYNTHROID [Interacting]
     Route: 048
     Dates: start: 20090901, end: 20091001
  3. SYNTHROID [Interacting]
     Route: 048
     Dates: start: 20091007, end: 20091113
  4. SYNTHROID [Interacting]
     Route: 048
     Dates: start: 20091113, end: 20091224
  5. SYNTHROID [Interacting]
     Route: 048
     Dates: start: 20091224
  6. PRILOSEC [Concomitant]
     Indication: OESOPHAGEAL DISORDER
     Route: 048
  7. HEART MEDICATION [Concomitant]
     Indication: CARDIAC DISORDER
     Dates: end: 20060101
  8. METOPROLOL TARTRATE [Concomitant]
     Indication: HEART RATE INCREASED
     Route: 048

REACTIONS (22)
  - ABDOMINAL PAIN [None]
  - AGITATION [None]
  - ARRHYTHMIA [None]
  - BLOOD THYROID STIMULATING HORMONE INCREASED [None]
  - CHOLECYSTITIS INFECTIVE [None]
  - COLD SWEAT [None]
  - DEPRESSION [None]
  - DIZZINESS [None]
  - DYSPEPSIA [None]
  - EROSIVE OESOPHAGITIS [None]
  - FAECES DISCOLOURED [None]
  - FREQUENT BOWEL MOVEMENTS [None]
  - HEART RATE INCREASED [None]
  - HEART RATE IRREGULAR [None]
  - HYPERTHYROIDISM [None]
  - INCORRECT DRUG ADMINISTRATION DURATION [None]
  - INSOMNIA [None]
  - IRRITABILITY [None]
  - LETHARGY [None]
  - NERVOUSNESS [None]
  - PSYCHOMOTOR HYPERACTIVITY [None]
  - TACHYCARDIA [None]
